FAERS Safety Report 8239674-6 (Version None)
Quarter: 2012Q1

REPORT INFORMATION
  Report Type: 
  Country: None (occurrence: None)
  Receive Date: 20120328
  Receipt Date: 20120320
  Transmission Date: 20120608
  Serious: Yes (Other)
  Sender: FDA-Public Use
  Company Number: US-AMGEN-USASP2012018050

PATIENT
  Age: 38 Year
  Sex: Female

DRUGS (2)
  1. ENBREL [Suspect]
     Indication: PSORIASIS
     Dosage: 50 MG, QWK
     Dates: start: 20070101, end: 20120201
  2. STELARA [Concomitant]
     Dosage: UNK
     Dates: start: 20120308

REACTIONS (11)
  - URINARY TRACT INFECTION [None]
  - DYSPHAGIA [None]
  - ARTHRALGIA [None]
  - SWELLING FACE [None]
  - CONFUSIONAL STATE [None]
  - DYSPNOEA [None]
  - EYE SWELLING [None]
  - DRUG INEFFECTIVE [None]
  - LOCAL SWELLING [None]
  - PAIN [None]
  - PAIN IN EXTREMITY [None]
